FAERS Safety Report 8356111-1 (Version None)
Quarter: 2012Q1

REPORT INFORMATION
  Report Type: 
  Country: None (occurrence: None)
  Receive Date: 20120315
  Receipt Date: 20110519
  Transmission Date: 20120608
  Serious: Yes (Other)
  Sender: FDA-Public Use
  Company Number: PHHY2011US26576

PATIENT
  Age: 28 Year
  Sex: Male
  Weight: 88.9 kg

DRUGS (3)
  1. MULTIVITAMIN (ASCORBIC ACID, ERFOCALCIFEROL, FOLIC ACID, NICOTINAMIDE, [Concomitant]
  2. GILENYA [Suspect]
     Indication: MULTIPLE SCLEROSIS
     Dosage: 0.5MG, QD, ORAL
     Route: 048
     Dates: start: 20110329, end: 20110329
  3. OSTEO BI-FLEX (CHONDROITIN SULFATE, GLUCOSAMINE HYDROCHLORIDE) [Concomitant]

REACTIONS (2)
  - LOSS OF CONSCIOUSNESS [None]
  - SINUS BRADYCARDIA [None]
